FAERS Safety Report 7132640-3 (Version None)
Quarter: 2010Q4

REPORT INFORMATION
  Report Type: 
  Country: None (occurrence: None)
  Receive Date: 20101202
  Receipt Date: 20101122
  Transmission Date: 20110411
  Serious: Yes (Life-Threatening, Hospitalization)
  Sender: FDA-Public Use
  Company Number: JP-JNJFOC-20100700828

PATIENT
  Sex: Female
  Weight: 41 kg

DRUGS (7)
  1. DOXORUBICIN HCL [Suspect]
     Indication: OVARIAN CANCER RECURRENT
     Dosage: CYCLE 1
     Route: 042
  2. DECADRON [Suspect]
     Indication: ALANINE AMINOTRANSFERASE INCREASED
     Route: 042
  3. DECADRON [Suspect]
     Indication: ASPARTATE AMINOTRANSFERASE INCREASED
     Route: 042
  4. ZOMETA [Concomitant]
     Indication: OVARIAN CANCER RECURRENT
     Route: 042
  5. OPSO [Concomitant]
     Indication: OVARIAN CANCER RECURRENT
     Route: 048
  6. OXYCONTIN [Concomitant]
     Indication: OVARIAN CANCER RECURRENT
     Route: 048
  7. ROHYPNOL [Concomitant]
     Indication: INSOMNIA
     Dosage: TABLET, AS NECESSARY
     Route: 048

REACTIONS (5)
  - DEHYDRATION [None]
  - DIABETES MELLITUS [None]
  - FATIGUE [None]
  - NAUSEA [None]
  - VOMITING [None]
